FAERS Safety Report 20885279 (Version 6)
Quarter: 2022Q3

REPORT INFORMATION
  Report Type: Report from Study
  Country: CA (occurrence: CA)
  Receive Date: 20220527
  Receipt Date: 20220915
  Transmission Date: 20221026
  Serious: Yes (Hospitalization, Other)
  Sender: FDA-Public Use
  Company Number: CA-TAKEDA-CA202021123

PATIENT
  Age: 19 Year
  Sex: Male
  Weight: 62 kg

DRUGS (16)
  1. IDURSULFASE [Suspect]
     Active Substance: IDURSULFASE
     Indication: Mucopolysaccharidosis II
     Dosage: 30 MILLIGRAM, 1/WEEK
     Route: 065
     Dates: start: 20070501
  2. IDURSULFASE [Suspect]
     Active Substance: IDURSULFASE
     Dosage: 5 DOSAGE FORM, 1/WEEK
     Route: 065
     Dates: start: 20070501
  3. IDURSULFASE [Suspect]
     Active Substance: IDURSULFASE
     Dosage: 5 DOSAGE FORM, 1/WEEK
     Route: 065
     Dates: start: 20070501
  4. IDURSULFASE [Suspect]
     Active Substance: IDURSULFASE
     Dosage: 5 DOSAGE FORM, 1/WEEK
     Route: 065
     Dates: start: 20070501
  5. IDURSULFASE [Suspect]
     Active Substance: IDURSULFASE
     Dosage: 5 DOSAGE FORM, 1/WEEK
     Route: 065
     Dates: start: 20070501
  6. IDURSULFASE [Suspect]
     Active Substance: IDURSULFASE
     Dosage: 32 MILLIGRAM, 1/WEEK
     Route: 065
     Dates: start: 20070501
  7. IDURSULFASE [Suspect]
     Active Substance: IDURSULFASE
     Dosage: 32 MILLIGRAM, 1/WEEK
     Route: 065
     Dates: start: 20070501
  8. IDURSULFASE [Suspect]
     Active Substance: IDURSULFASE
     Dosage: 32 MILLIGRAM, 1/WEEK
     Route: 042
     Dates: start: 20070501
  9. IDURSULFASE [Suspect]
     Active Substance: IDURSULFASE
     Dosage: 5 DOSAGE FORM, 1/WEEK
     Route: 042
     Dates: start: 20070501
  10. IDURSULFASE [Suspect]
     Active Substance: IDURSULFASE
     Dosage: 32 MILLIGRAM, 1/WEEK
     Route: 042
     Dates: start: 20070501
  11. IDURSULFASE [Suspect]
     Active Substance: IDURSULFASE
     Dosage: 5 DOSAGE FORM, 1/WEEK
     Route: 050
     Dates: start: 20070501
  12. IDURSULFASE [Suspect]
     Active Substance: IDURSULFASE
     Dosage: 5 DOSAGE FORM, 1/WEEK
     Route: 050
     Dates: start: 20070501
  13. IDURSULFASE [Suspect]
     Active Substance: IDURSULFASE
     Dosage: 30 MILLIGRAM, 1/WEEK
     Route: 065
     Dates: start: 20200625
  14. IDURSULFASE [Suspect]
     Active Substance: IDURSULFASE
     Dosage: 5 DOSAGE FORM, 1/WEEK
     Route: 050
     Dates: start: 20070501
  15. ACETAMINOPHEN [Concomitant]
     Active Substance: ACETAMINOPHEN
     Dosage: UNK
     Route: 065
  16. VENTOLIN [Concomitant]
     Active Substance: ALBUTEROL SULFATE
     Dosage: UNK
     Route: 065

REACTIONS (20)
  - Central venous catheter removal [Recovered/Resolved]
  - Fatigue [Not Recovered/Not Resolved]
  - Cough [Not Recovered/Not Resolved]
  - Coronary artery disease [Unknown]
  - Endotracheal intubation complication [Unknown]
  - Respiratory rate increased [Unknown]
  - Epistaxis [Unknown]
  - Blood pressure increased [Unknown]
  - Heart rate increased [Unknown]
  - Central venous catheter removal [Unknown]
  - Peripheral coldness [Unknown]
  - Poor venous access [Recovered/Resolved]
  - Infusion site extravasation [Recovered/Resolved]
  - Infusion site swelling [Unknown]
  - Pyrexia [Unknown]
  - Rash [Unknown]
  - Medication error [Unknown]
  - Device placement issue [Unknown]
  - Product dose omission issue [Unknown]
  - Wrong technique in device usage process [Recovered/Resolved]

NARRATIVE: CASE EVENT DATE: 20200703
